FAERS Safety Report 11693243 (Version 1)
Quarter: 2015Q4

REPORT INFORMATION
  Report Type: Spontaneous
  Country: US (occurrence: US)
  Receive Date: 20151103
  Receipt Date: 20151103
  Transmission Date: 20160304
  Serious: Yes (Other)
  Sender: FDA-Public Use
  Company Number: US-PFIZER INC-2015358731

PATIENT
  Age: 25 Year
  Sex: Male
  Weight: 86 kg

DRUGS (1)
  1. LYRICA [Suspect]
     Active Substance: PREGABALIN
     Dosage: (75-150MG), 1X/DAY
     Route: 048
     Dates: start: 2015, end: 2015

REACTIONS (2)
  - Drug abuse [Unknown]
  - Euphoric mood [Unknown]

NARRATIVE: CASE EVENT DATE: 2015
